APPROVED DRUG PRODUCT: POVIDONE IODINE
Active Ingredient: POVIDONE-IODINE
Strength: 1%
Dosage Form/Route: SOLUTION;TOPICAL
Application: N019522 | Product #001
Applicant: ALLEGIANCE HEALTHCARE CORP
Approved: Mar 31, 1989 | RLD: Yes | RS: Yes | Type: OTC